FAERS Safety Report 4312472-1 (Version None)
Quarter: 2004Q1

REPORT INFORMATION
  Report Type: 
  Country: None (occurrence: None)
  Receive Date: 20040305
  Receipt Date: 20030506
  Transmission Date: 20041129
  Serious: Yes (Death, Other)
  Sender: FDA-Public Use
  Company Number: PHBS2003BR14602

PATIENT
  Age: 91 Year
  Sex: Male

DRUGS (2)
  1. SANDOSTATIN [Suspect]
     Indication: CARCINOID SYNDROME
     Dosage: 500 MG
  2. INTERFERON GAMMA [Concomitant]
     Dates: start: 19940101

REACTIONS (4)
  - CARCINOID TUMOUR PULMONARY [None]
  - DEATH [None]
  - HORMONE LEVEL ABNORMAL [None]
  - METASTASES TO LIVER [None]
